FAERS Safety Report 9866968 (Version 1)
Quarter: 2014Q1

REPORT INFORMATION
  Report Type: Spontaneous
  Country: US (occurrence: US)
  Receive Date: 20140204
  Receipt Date: 20140204
  Transmission Date: 20141002
  Serious: No
  Sender: FDA-Public Use
  Company Number: US-PFIZER INC-2014031146

PATIENT
  Age: 51 Year
  Sex: Female
  Weight: 79.37 kg

DRUGS (2)
  1. TOVIAZ [Suspect]
     Indication: HYPERTONIC BLADDER
     Dosage: 4 MG, DAILY
     Dates: start: 20140121
  2. GELNIQUE [Suspect]
     Indication: HYPERTONIC BLADDER
     Dosage: UNK
     Dates: start: 20140103, end: 20140116

REACTIONS (2)
  - Somnolence [Recovering/Resolving]
  - Breast tenderness [Not Recovered/Not Resolved]
